FAERS Safety Report 6543974-5 (Version None)
Quarter: 2010Q1

REPORT INFORMATION
  Report Type: 
  Country: None (occurrence: None)
  Receive Date: 20100120
  Receipt Date: 20100108
  Transmission Date: 20100710
  Serious: Yes (Hospitalization)
  Sender: FDA-Public Use
  Company Number: PHHY2009DK55033

PATIENT
  Sex: Female

DRUGS (6)
  1. RASILEZ [Suspect]
     Indication: HYPERTENSION
     Dosage: 150 MG, QD
     Route: 048
     Dates: start: 20090421, end: 20091124
  2. SIMVASTATIN [Concomitant]
     Indication: HYPERLIPIDAEMIA
     Dosage: 40 MG, QD
  3. PREDNISOLONE [Concomitant]
     Indication: POLYMYALGIA RHEUMATICA
     Dosage: 5 MG, QD
  4. NOVOMIX 30 [Concomitant]
     Indication: DIABETES MELLITUS
     Dosage: 30 IU IN THE MORNING
  5. LANSOPRAZOLE [Concomitant]
     Indication: GASTROOESOPHAGEAL REFLUX DISEASE
     Dosage: 15 MG, QD
  6. MAREVAN [Concomitant]
     Indication: PHLEBITIS
     Dosage: 2.5 MG, UNK
     Route: 048

REACTIONS (4)
  - AZOTAEMIA [None]
  - COLITIS COLLAGENOUS [None]
  - DIARRHOEA [None]
  - DIZZINESS [None]
